FAERS Safety Report 7876360-6 (Version None)
Quarter: 2011Q4

REPORT INFORMATION
  Report Type: 
  Country: None (occurrence: None)
  Receive Date: 20111031
  Receipt Date: 20111027
  Transmission Date: 20120403
  Serious: Yes (Life-Threatening, Hospitalization, Disabling)
  Sender: FDA-Public Use
  Company Number: US-MERCK-1108USA03363

PATIENT
  Age: 73 Year
  Sex: Female
  Weight: 78 kg

DRUGS (6)
  1. AMLODIPINE [Concomitant]
     Route: 048
  2. ENBREL [Concomitant]
     Indication: RHEUMATOID ARTHRITIS
     Route: 058
     Dates: start: 20100101
  3. METHOTREXATE [Concomitant]
     Indication: RASH
     Route: 048
     Dates: start: 20080101
  4. JANUMET [Suspect]
     Indication: DIABETES MELLITUS
     Route: 048
  5. SIMVASTATIN [Concomitant]
     Route: 065
  6. PREDNISONE [Concomitant]
     Route: 048
     Dates: start: 20080101

REACTIONS (4)
  - PANCREATITIS [None]
  - PULMONARY EMBOLISM [None]
  - CHOLELITHIASIS [None]
  - RASH [None]
